FAERS Safety Report 7355850-9 (Version None)
Quarter: 2011Q1

REPORT INFORMATION
  Report Type: 
  Country: None (occurrence: None)
  Receive Date: 20110316
  Receipt Date: 20110307
  Transmission Date: 20110831
  Serious: Yes (Death, Other)
  Sender: FDA-Public Use
  Company Number: CN-GENZYME-FLUD-1000746

PATIENT
  Age: 55 Year
  Sex: Female

DRUGS (5)
  1. MYCOPHENOLATE MOFETIL [Concomitant]
     Indication: PROPHYLAXIS AGAINST GRAFT VERSUS HOST DISEASE
     Route: 065
  2. METHOTREXATE [Concomitant]
     Indication: PROPHYLAXIS AGAINST GRAFT VERSUS HOST DISEASE
     Route: 065
  3. FLUDARA [Suspect]
     Indication: STEM CELL TRANSPLANT
     Dosage: 50 MG, QD, FROM DAYS -6 TO -2
     Route: 042
  4. METHYL CCNU [Suspect]
     Indication: STEM CELL TRANSPLANT
     Dosage: 250 MG/M2, ONCE ON DAY -3
     Route: 048
  5. CYCLOSPORINE [Concomitant]
     Indication: PROPHYLAXIS AGAINST GRAFT VERSUS HOST DISEASE
     Route: 065

REACTIONS (3)
  - LUNG INFECTION [None]
  - RESPIRATORY FAILURE [None]
  - NEOPLASM MALIGNANT [None]
